FAERS Safety Report 7525433-6 (Version None)
Quarter: 2011Q2

REPORT INFORMATION
  Report Type: 
  Country: None (occurrence: None)
  Receive Date: 20110526
  Receipt Date: 20110511
  Transmission Date: 20111010
  Serious: Yes (Other)
  Sender: FDA-Public Use
  Company Number: CL-311-2011

PATIENT
  Age: 68 Year
  Sex: Female

DRUGS (4)
  1. FLUCONAZOLE [Suspect]
  2. THYROXINE (ELTROXIN) [Suspect]
  3. SIMVASTATIN [Suspect]
  4. ITRACONAZOLE (UNK) [Suspect]

REACTIONS (1)
  - ALOPECIA [None]
